FAERS Safety Report 9443427 (Version 1)
Quarter: 2013Q3

REPORT INFORMATION
  Report Type: Report from Study
  Country: RU (occurrence: RU)
  Receive Date: 20130806
  Receipt Date: 20130806
  Transmission Date: 20140515
  Serious: Yes (Other)
  Sender: FDA-Public Use
  Company Number: RU-GLAXOSMITHKLINE-B0912796A

PATIENT
  Age: 28 Year
  Sex: Female

DRUGS (1)
  1. RETIGABINE [Suspect]
     Indication: PARTIAL SEIZURES
     Dosage: 300MG PER DAY
     Route: 048
     Dates: start: 20110824

REACTIONS (1)
  - Retinal pigmentation [Unknown]
